FAERS Safety Report 5993166-3 (Version None)
Quarter: 2008Q4

REPORT INFORMATION
  Report Type: 
  Country: None (occurrence: None)
  Receive Date: 20081210
  Receipt Date: 20081210
  Transmission Date: 20090506
  Serious: Yes (Hospitalization)
  Sender: FDA-Public Use
  Company Number: None

PATIENT
  Sex: Female
  Weight: 62.2 kg

DRUGS (10)
  1. DOXORUBICIN HCL [Suspect]
     Indication: BREAST CANCER STAGE II
     Dosage: 60MG/M2 EVERY 3 WEEKS IV
     Route: 042
     Dates: start: 20080916, end: 20081121
  2. CYCLOPHOSPHAMIDE [Suspect]
     Indication: BREAST CANCER STAGE II
     Dosage: 600MG/M2 EVERY 3 WEEKS IV
     Route: 042
     Dates: start: 20080916, end: 20081121
  3. EFFEXOR [Concomitant]
  4. OXYCODONE [Concomitant]
  5. IBUPROFEN [Concomitant]
  6. TYLENOL (CAPLET) [Concomitant]
  7. SLOW IRON SUPPLEMENTS [Concomitant]
  8. MULTI-VITAMIN [Concomitant]
  9. LEVAQUIN [Concomitant]
  10. ROBITUSSIN [Concomitant]

REACTIONS (8)
  - ABDOMINAL PAIN [None]
  - COUGH [None]
  - HYPOPHAGIA [None]
  - NEUTROPENIA [None]
  - OROPHARYNGEAL PAIN [None]
  - PNEUMONIA [None]
  - PYREXIA [None]
  - SINUSITIS [None]
